FAERS Safety Report 24787128 (Version 4)
Quarter: 2025Q1

REPORT INFORMATION
  Report Type: Spontaneous
  Country: PT (occurrence: PT)
  Receive Date: 20241230
  Receipt Date: 20250106
  Transmission Date: 20250409
  Serious: Yes (Death, Hospitalization, Other)
  Sender: SANDOZ
  Company Number: PT-SAMSUNG BIOEPIS-SB-2024-38768

PATIENT
  Age: 70 Year
  Sex: Female

DRUGS (1)
  1. ADALIMUMAB [Suspect]
     Active Substance: ADALIMUMAB
     Indication: Rheumatoid arthritis
     Route: 065

REACTIONS (5)
  - General physical health deterioration [Fatal]
  - Renal cancer [Fatal]
  - Renal cancer metastatic [Fatal]
  - Pleural effusion [Unknown]
  - Metastatic neoplasm [Unknown]
